FAERS Safety Report 21787349 (Version 1)
Quarter: 2022Q4

REPORT INFORMATION
  Report Type: Spontaneous
  Country: US (occurrence: US)
  Receive Date: 20221228
  Receipt Date: 20221228
  Transmission Date: 20230112
  Serious: Yes (Hospitalization, Other)
  Sender: FDA-Public Use
  Company Number: US-CELLTRION INC.-2022US021564

PATIENT

DRUGS (3)
  1. TRUXIMA [Suspect]
     Active Substance: RITUXIMAB-ABBS
     Indication: Rheumatoid arthritis
     Dosage: CYCLE OF 2 DOSES, 2 WEEKS APART, EVERY 4-5 MONTHS
     Dates: start: 202104
  2. TRUXIMA [Suspect]
     Active Substance: RITUXIMAB-ABBS
     Dosage: CYCLE OF 2 DOSES, 2 WEEKS APART, EVERY 4-5 MONTHS (FIRST DOSE, SECOND CYCLE)
     Dates: start: 202108
  3. TRUXIMA [Suspect]
     Active Substance: RITUXIMAB-ABBS
     Dosage: CYCLE OF 2 DOSES, 2 WEEKS APART, EVERY 4-5 MONTHS (SECOND AND FINAL DOSE, SECOND CYCLE)
     Dates: start: 202109, end: 202109

REACTIONS (7)
  - Pulmonary embolism [Unknown]
  - Systemic lupus erythematosus [Unknown]
  - COVID-19 pneumonia [Unknown]
  - COVID-19 [Unknown]
  - Hypotension [Unknown]
  - Intentional dose omission [Unknown]
  - Therapy cessation [Unknown]

NARRATIVE: CASE EVENT DATE: 20210801
